FAERS Safety Report 4862697-1 (Version None)
Quarter: 2005Q4

REPORT INFORMATION
  Report Type: 
  Country: None (occurrence: None)
  Receive Date: 20051221
  Receipt Date: 20050920
  Transmission Date: 20060501
  Serious: Yes (Hospitalization, Disabling)
  Sender: FDA-Public Use
  Company Number: US-MERCK-0509USA03223

PATIENT
  Age: 56 Year
  Sex: Male
  Weight: 85 kg

DRUGS (10)
  1. VIOXX [Suspect]
     Indication: SPONDYLITIS
     Route: 048
     Dates: start: 20020227, end: 20040901
  2. VIOXX [Suspect]
     Indication: MONARTHRITIS
     Route: 048
     Dates: start: 20020227, end: 20040901
  3. ZESTORETIC [Concomitant]
     Route: 065
  4. PREVACID [Concomitant]
     Route: 065
  5. METROGEL [Concomitant]
     Route: 065
  6. DOXYCYCLINE [Concomitant]
     Route: 065
  7. [THERAPY UNSPECIFIED] [Concomitant]
     Route: 065
  8. TOPROL-XL [Concomitant]
     Route: 065
  9. NIASPAN [Concomitant]
     Route: 065
  10. [THERAPY UNSPECIFIED] [Concomitant]
     Route: 065

REACTIONS (4)
  - ADVERSE EVENT [None]
  - BLOOD CHOLESTEROL INCREASED [None]
  - MYOCARDIAL INFARCTION [None]
  - SLEEP APNOEA SYNDROME [None]
